FAERS Safety Report 26036054 (Version 1)
Quarter: 2025Q4

REPORT INFORMATION
  Report Type: Spontaneous
  Country: JP (occurrence: JP)
  Receive Date: 20251112
  Receipt Date: 20251112
  Transmission Date: 20260117
  Serious: Yes (Hospitalization, Other)
  Sender: ALEXION PHARMACEUTICALS
  Company Number: JP-AstraZeneca-CH-00988139A

PATIENT
  Age: 70 Year
  Sex: Female
  Weight: 56 kg

DRUGS (2)
  1. DAPAGLIFLOZIN [Suspect]
     Active Substance: DAPAGLIFLOZIN
     Indication: Chronic kidney disease
     Dosage: 10 MILLIGRAM, QD
  2. CRESTOR [Suspect]
     Active Substance: ROSUVASTATIN CALCIUM
     Dosage: 25 MILLIGRAM, QD
     Route: 065

REACTIONS (12)
  - Ischaemia [Unknown]
  - Cardiac failure [Unknown]
  - Oedema peripheral [Recovering/Resolving]
  - Pleural effusion [Not Recovered/Not Resolved]
  - Atrial fibrillation [Unknown]
  - Coronary artery stenosis [Unknown]
  - Renal atrophy [Unknown]
  - Arterial stiffness [Unknown]
  - Glomerular filtration rate decreased [Unknown]
  - Renal ischaemia [Unknown]
  - Angiosclerosis [Unknown]
  - Renal impairment [Unknown]
